FAERS Safety Report 4328002-4 (Version None)
Quarter: 2004Q1

REPORT INFORMATION
  Report Type: 
  Country: None (occurrence: None)
  Receive Date: 20040325
  Receipt Date: 20040224
  Transmission Date: 20041129
  Serious: Yes (Hospitalization)
  Sender: FDA-Public Use
  Company Number: KII-2003-0007714

PATIENT
  Age: 82 Year
  Sex: Female

DRUGS (2)
  1. UNIPHYL [Suspect]
     Indication: DRUG USE FOR UNKNOWN INDICATION
     Dosage: 600 MG, DAILY, ORAL
     Route: 048
  2. TEQUIN [Suspect]
     Indication: DRUG USE FOR UNKNOWN INDICATION
     Dosage: 1 TABLET, DAILY, ORAL
     Route: 048

REACTIONS (3)
  - DRUG LEVEL INCREASED [None]
  - NAUSEA [None]
  - OVERDOSE [None]
